FAERS Safety Report 13367373 (Version 1)
Quarter: 2017Q1

REPORT INFORMATION
  Report Type: Spontaneous
  Country: CA (occurrence: CA)
  Receive Date: 20170324
  Receipt Date: 20170324
  Transmission Date: 20170429
  Serious: Yes (Other)
  Sender: FDA-Public Use
  Company Number: CA-STRIDES ARCOLAB LIMITED-2017SP004940

PATIENT

DRUGS (2)
  1. TACROLIMUS. [Suspect]
     Active Substance: TACROLIMUS
     Indication: NEPHROTIC SYNDROME
     Dosage: UNK, UNKNOWN
     Route: 065
  2. CICLOSPORIN [Suspect]
     Active Substance: CYCLOSPORINE
     Indication: NEPHROTIC SYNDROME
     Dosage: UNK, UNKNOWN
     Route: 065

REACTIONS (12)
  - Idiosyncratic drug reaction [Recovered/Resolved]
  - Off label use [Unknown]
  - Vasculitis [Recovered/Resolved]
  - Failure to thrive [Recovered/Resolved]
  - Diarrhoea [Recovered/Resolved]
  - Pericardial effusion [Recovered/Resolved]
  - Muscular weakness [Recovered/Resolved]
  - Ascites [Recovered/Resolved]
  - Rash generalised [Recovered/Resolved]
  - Respiratory symptom [Recovered/Resolved]
  - Gastroenteritis eosinophilic [Recovered/Resolved]
  - Pleural effusion [Recovered/Resolved]
